FAERS Safety Report 23452735 (Version 1)
Quarter: 2024Q1

REPORT INFORMATION
  Report Type: Spontaneous
  Country: US (occurrence: US)
  Receive Date: 20240129
  Receipt Date: 20240129
  Transmission Date: 20240410
  Serious: No
  Sender: FDA-Public Use
  Company Number: US-SAREPTA THERAPEUTICS INC.-SRP2023-003795

PATIENT
  Age: 15 Year
  Sex: Male
  Weight: 61.71 kg

DRUGS (10)
  1. AMONDYS 45 [Suspect]
     Active Substance: CASIMERSEN
     Indication: Duchenne muscular dystrophy
     Dosage: 4100 MILLIGRAM, WEEKLY
     Route: 042
     Dates: start: 20230216, end: 20230901
  2. AMONDYS 45 [Suspect]
     Active Substance: CASIMERSEN
     Dosage: 4100 MILLIGRAM, WEEKLY
     Route: 042
     Dates: start: 20230915
  3. ALBUTEROL [Concomitant]
     Active Substance: ALBUTEROL
     Indication: Product used for unknown indication
     Dosage: 2.5 MILLIGRAM/ 3ML
     Route: 065
  4. LISINOPRIL [Concomitant]
     Active Substance: LISINOPRIL
     Indication: Product used for unknown indication
     Dosage: 10 MILLIGRAM, QD
     Route: 065
     Dates: start: 20220726
  5. ATENOLOL [Concomitant]
     Active Substance: ATENOLOL
     Indication: Product used for unknown indication
     Dosage: 10 MILLIGRAM/5ML
     Route: 065
     Dates: start: 20220914
  6. FAMOTIDINE [Concomitant]
     Active Substance: FAMOTIDINE
     Indication: Product used for unknown indication
     Dosage: 40 MILLIGRAM
     Route: 065
     Dates: start: 20220909
  7. CALCIUM CARBONATE [Concomitant]
     Active Substance: CALCIUM CARBONATE
     Indication: Product used for unknown indication
     Dosage: 1250 MILLIGRAM, QD
     Route: 065
     Dates: start: 20220909
  8. CHOLECALCIFEROL [Concomitant]
     Active Substance: CHOLECALCIFEROL
     Indication: Product used for unknown indication
     Dosage: 125 MICROGRAM/ML, QD
     Dates: start: 20220909
  9. PREDNISOLONE [Concomitant]
     Active Substance: PREDNISOLONE
     Indication: Product used for unknown indication
     Dosage: 10 MILLIGRAM, QD
     Route: 065
     Dates: start: 20220909
  10. SPIRONOLACTONE [Concomitant]
     Active Substance: SPIRONOLACTONE
     Indication: Product used for unknown indication
     Dosage: 50 MILLIGRAM, QD
     Dates: start: 20230726

REACTIONS (2)
  - Product dose omission issue [Unknown]
  - No adverse event [Unknown]

NARRATIVE: CASE EVENT DATE: 20230908
